FAERS Safety Report 24140062 (Version 1)
Quarter: 2024Q3

REPORT INFORMATION
  Report Type: Spontaneous
  Country: US (occurrence: US)
  Receive Date: 20240726
  Receipt Date: 20240726
  Transmission Date: 20241017
  Serious: No
  Sender: NOVAST
  Company Number: US-NOVAST LABORATORIES INC.-2024NOV000001

PATIENT

DRUGS (3)
  1. DILTIAZEM HYDROCHLORIDE [Suspect]
     Active Substance: DILTIAZEM HYDROCHLORIDE
     Indication: Blood pressure measurement
     Dosage: UNK
     Route: 065
     Dates: start: 20240108
  2. DILTIAZEM HYDROCHLORIDE [Suspect]
     Active Substance: DILTIAZEM HYDROCHLORIDE
     Indication: Palpitations
  3. ASPIRIN [Concomitant]
     Active Substance: ASPIRIN
     Indication: Product used for unknown indication
     Dosage: UNK
     Route: 065

REACTIONS (10)
  - Stress [Recovering/Resolving]
  - Mental impairment [Recovering/Resolving]
  - Decreased appetite [Recovering/Resolving]
  - Drug hypersensitivity [Recovering/Resolving]
  - Malaise [Recovering/Resolving]
  - Palpitations [Recovering/Resolving]
  - Headache [Recovering/Resolving]
  - Tremor [Recovering/Resolving]
  - Paraesthesia [Recovering/Resolving]
  - Product use in unapproved indication [Unknown]
